FAERS Safety Report 8320608-0 (Version None)
Quarter: 2012Q1

REPORT INFORMATION
  Report Type: 
  Country: None (occurrence: None)
  Receive Date: 20120315
  Receipt Date: 20101220
  Transmission Date: 20120608
  Serious: Yes (Other)
  Sender: FDA-Public Use
  Company Number: PHHY2010US86082

PATIENT
  Age: 27 Year
  Sex: Male
  Weight: 82.5 kg

DRUGS (1)
  1. GILENYA [Suspect]
     Indication: MULTIPLE SCLEROSIS
     Dosage: 0.5 MG DAILY, ORAL
     Route: 048
     Dates: start: 20101214, end: 20101216

REACTIONS (2)
  - HERPES SIMPLEX [None]
  - ORAL DISORDER [None]
